FAERS Safety Report 11748662 (Version 2)
Quarter: 2016Q3

REPORT INFORMATION
  Report Type: Spontaneous
  Country: US (occurrence: US)
  Receive Date: 20151117
  Receipt Date: 20160720
  Transmission Date: 20161109
  Serious: No
  Sender: FDA-Public Use
  Company Number: US-MYLANLABS-2015M1039965

PATIENT

DRUGS (8)
  1. DOCOSAHEXAENOIC ACID [Concomitant]
     Active Substance: DOCONEXENT
     Indication: MAJOR DEPRESSION
     Route: 065
  2. HALOPERIDOL. [Concomitant]
     Active Substance: HALOPERIDOL
     Indication: MAJOR DEPRESSION
     Route: 065
  3. KETAMINE [Suspect]
     Active Substance: KETAMINE
     Indication: MAJOR DEPRESSION
     Dosage: 0.35 ML BY MOUTH
     Route: 050
  4. LISDEXAMFETAMINE [Concomitant]
     Active Substance: LISDEXAMFETAMINE
     Indication: MAJOR DEPRESSION
     Route: 065
  5. CLONAZEPAM. [Concomitant]
     Active Substance: CLONAZEPAM
     Indication: MAJOR DEPRESSION
     Route: 065
  6. ESCITALOPRAM [Concomitant]
     Active Substance: ESCITALOPRAM OXALATE
     Indication: MAJOR DEPRESSION
     Route: 065
  7. LEVOMEFOLIC ACID [Concomitant]
     Active Substance: LEVOMEFOLIC ACID
     Indication: MAJOR DEPRESSION
     Route: 065
  8. KETAMINE [Suspect]
     Active Substance: KETAMINE
     Dosage: 1 ML, QW
     Route: 050

REACTIONS (2)
  - Off label use [Unknown]
  - No adverse event [Recovered/Resolved]
